FAERS Safety Report 19278419 (Version 3)
Quarter: 2022Q4

REPORT INFORMATION
  Report Type: Spontaneous
  Country: US (occurrence: US)
  Receive Date: 20210520
  Receipt Date: 20221011
  Transmission Date: 20230113
  Serious: Yes (Other)
  Sender: FDA-Public Use
  Company Number: US-ASTELLAS-2021US017828

PATIENT
  Age: 45 Year
  Sex: Female

DRUGS (3)
  1. XOSPATA [Suspect]
     Active Substance: GILTERITINIB
     Indication: Acute myeloid leukaemia
     Route: 065
  2. XOSPATA [Suspect]
     Active Substance: GILTERITINIB
     Indication: FLT3 gene mutation
     Route: 065
  3. XOSPATA [Suspect]
     Active Substance: GILTERITINIB
     Route: 065

REACTIONS (13)
  - Graft versus host disease in skin [Recovered/Resolved]
  - Hyperleukocytosis [Unknown]
  - Mastitis [Unknown]
  - Differentiation syndrome [Unknown]
  - Acute respiratory distress syndrome [Unknown]
  - Localised infection [Unknown]
  - Lung infiltration [Unknown]
  - Weight increased [Unknown]
  - Oedema [Unknown]
  - Sinusitis [Not Recovered/Not Resolved]
  - Mouth ulceration [Unknown]
  - Tongue ulceration [Unknown]
  - Blood bilirubin increased [Unknown]

NARRATIVE: CASE EVENT DATE: 20170213
